FAERS Safety Report 6329638-1 (Version None)
Quarter: 2009Q3

REPORT INFORMATION
  Report Type: 
  Country: None (occurrence: None)
  Receive Date: 20090826
  Receipt Date: 20090819
  Transmission Date: 20100115
  Serious: Yes (Disabling)
  Sender: FDA-Public Use
  Company Number: CO-GENENTECH-263223

PATIENT
  Sex: Female

DRUGS (5)
  1. XOLAIR [Suspect]
     Indication: ASTHMA
     Dosage: 300 MG, Q15D
     Route: 058
     Dates: start: 20070705, end: 20080501
  2. LONG-ACTING BETA-2 AGONIST NOS [Concomitant]
     Indication: DRUG USE FOR UNKNOWN INDICATION
  3. BETA-2 AGONIST NOS [Concomitant]
     Indication: DRUG USE FOR UNKNOWN INDICATION
  4. INHALED CORTICOSTEROIDS [Concomitant]
     Indication: DRUG USE FOR UNKNOWN INDICATION
  5. LEUKOTRIENE ANTAGONIST [Concomitant]
     Indication: DRUG USE FOR UNKNOWN INDICATION

REACTIONS (2)
  - PRODUCT QUALITY ISSUE [None]
  - RASH GENERALISED [None]
